FAERS Safety Report 10372108 (Version 2)
Quarter: 2014Q4

REPORT INFORMATION
  Report Type: Report from Study
  Country: DE (occurrence: DE)
  Receive Date: 20140808
  Receipt Date: 20141024
  Transmission Date: 20150528
  Serious: Yes (Hospitalization, Other)
  Sender: FDA-Public Use
  Company Number: DE-ABBVIE-14K-062-1268573-00

PATIENT
  Age: 45 Year
  Sex: Male
  Weight: 68 kg

DRUGS (5)
  1. HUMIRA [Suspect]
     Active Substance: ADALIMUMAB
     Indication: PSORIATIC ARTHROPATHY
     Route: 058
     Dates: start: 201204, end: 201407
  2. PANTOZOL [Concomitant]
     Active Substance: PANTOPRAZOLE SODIUM
     Indication: PRODUCT USED FOR UNKNOWN INDICATION
     Dates: start: 201207
  3. SUSTIVA [Concomitant]
     Active Substance: EFAVIRENZ
     Indication: PRODUCT USED FOR UNKNOWN INDICATION
     Dates: start: 201204
  4. KIVEXA [Concomitant]
     Active Substance: ABACAVIR SULFATE\LAMIVUDINE
     Indication: PRODUCT USED FOR UNKNOWN INDICATION
     Dates: start: 201204
  5. FRESUBIN [Concomitant]
     Active Substance: AMINO ACIDS\DEXTROSE\ELECTROLYTES NOS\SOYBEAN OIL\VITAMINS
     Indication: PRODUCT USED FOR UNKNOWN INDICATION

REACTIONS (19)
  - Urosepsis [Unknown]
  - Hepatic cirrhosis [Unknown]
  - Respiratory disorder [Unknown]
  - Gamma-glutamyltransferase increased [Unknown]
  - General physical health deterioration [Recovered/Resolved]
  - Procalcitonin increased [Unknown]
  - Loss of consciousness [Recovering/Resolving]
  - Acute kidney injury [Recovering/Resolving]
  - Renal abscess [Unknown]
  - Acute hepatic failure [Recovering/Resolving]
  - Nephrolithiasis [Unknown]
  - Atelectasis [Unknown]
  - Generalised oedema [Unknown]
  - Splenomegaly [Unknown]
  - Lymphadenitis [Unknown]
  - White blood cell count increased [Unknown]
  - Cholestasis [Unknown]
  - Pleural effusion [Unknown]
  - C-reactive protein increased [Unknown]

NARRATIVE: CASE EVENT DATE: 201406
